FAERS Safety Report 7893655-0 (Version None)
Quarter: 2011Q4

REPORT INFORMATION
  Report Type: 
  Country: None (occurrence: None)
  Receive Date: 20111104
  Receipt Date: 20111031
  Transmission Date: 20120403
  Serious: Yes (Other)
  Sender: FDA-Public Use
  Company Number: DE-GLAXOSMITHKLINE-D0072543A

PATIENT
  Sex: Female
  Weight: 95 kg

DRUGS (4)
  1. FELBAMATE [Concomitant]
     Indication: EPILEPSY
     Dosage: 1200MG PER DAY
     Route: 048
     Dates: start: 20090101
  2. KEPPRA [Concomitant]
     Indication: EPILEPSY
     Dosage: 2000MG PER DAY
     Route: 048
     Dates: start: 20070101
  3. VALPROATE SODIUM [Concomitant]
     Indication: EPILEPSY
     Dosage: 750MG PER DAY
     Route: 048
     Dates: start: 20100101
  4. TROBALT [Suspect]
     Indication: EPILEPSY
     Route: 048
     Dates: start: 20110824, end: 20110826

REACTIONS (3)
  - CONVULSION [None]
  - DRUG INEFFECTIVE [None]
  - DRUG WITHDRAWAL CONVULSIONS [None]
